FAERS Safety Report 20070394 (Version 1)
Quarter: 2021Q4

REPORT INFORMATION
  Report Type: Spontaneous
  Country: GB (occurrence: GB)
  Receive Date: 20211115
  Receipt Date: 20211115
  Transmission Date: 20220303
  Serious: Yes (Other)
  Sender: FDA-Public Use
  Company Number: GB-REDHILL BIOPHARMA-2021RDH00198

PATIENT
  Age: 4 Decade
  Sex: Female

DRUGS (3)
  1. NALOXEGOL [Suspect]
     Active Substance: NALOXEGOL
     Indication: Product used for unknown indication
     Dosage: UNK, TWICE
  2. STELARA [Suspect]
     Active Substance: USTEKINUMAB
     Indication: Crohn^s disease
     Dosage: 90 MG, 6X/YEAR (EVERY 8 WEEKS)
     Route: 058
  3. POLYETHYLENE GLYCOL 3350\POTASSIUM CHLORIDE\SODIUM BICARBONATE\SODIUM [Concomitant]
     Active Substance: POLYETHYLENE GLYCOL 3350\POTASSIUM CHLORIDE\SODIUM BICARBONATE\SODIUM CHLORIDE

REACTIONS (2)
  - Crohn^s disease [Recovering/Resolving]
  - Abdominal pain [Unknown]

NARRATIVE: CASE EVENT DATE: 20211019
